FAERS Safety Report 6789523-8 (Version None)
Quarter: 2010Q2

REPORT INFORMATION
  Report Type: 
  Country: None (occurrence: None)
  Receive Date: 20100624
  Receipt Date: 20100616
  Transmission Date: 20101027
  Serious: Yes (Hospitalization)
  Sender: FDA-Public Use
  Company Number: US-BIOGENIDEC-2010BI018063

PATIENT
  Age: 51 Year
  Sex: Female

DRUGS (2)
  1. AVONEX [Suspect]
     Indication: MULTIPLE SCLEROSIS
     Route: 030
     Dates: start: 20060601
  2. AVONEX [Suspect]
     Route: 030
     Dates: start: 20040901

REACTIONS (5)
  - INTESTINAL CYST [None]
  - OVARIAN CYST [None]
  - SALPINGO-OOPHORECTOMY BILATERAL [None]
  - SCAR [None]
  - URETERAL CYST [None]
